FAERS Safety Report 23917152 (Version 2)
Quarter: 2024Q2

REPORT INFORMATION
  Report Type: Spontaneous
  Country: US (occurrence: US)
  Receive Date: 20240529
  Receipt Date: 20240530
  Transmission Date: 20240716
  Serious: No
  Sender: FDA-Public Use
  Company Number: US-INCYTE CORPORATION-2024IN004809

PATIENT

DRUGS (1)
  1. MONJUVI [Suspect]
     Active Substance: TAFASITAMAB-CXIX
     Dosage: 1000 MILLIGRAM
     Route: 065

REACTIONS (1)
  - Neutrophil count decreased [Unknown]
